FAERS Safety Report 7670030-5 (Version None)
Quarter: 2011Q3

REPORT INFORMATION
  Report Type: 
  Country: None (occurrence: None)
  Receive Date: 20110808
  Receipt Date: 20110728
  Transmission Date: 20111222
  Serious: Yes (Other)
  Sender: FDA-Public Use
  Company Number: ES-BAXTER-2011BH024623

PATIENT
  Age: 10 Year

DRUGS (7)
  1. IFOSFAMIDE [Suspect]
     Indication: EWING'S SARCOMA
     Route: 065
  2. DOXORUBICIN HCL [Suspect]
     Indication: EWING'S SARCOMA
     Route: 065
  3. IFOSFAMIDE [Suspect]
     Route: 065
  4. CYCLOPHOSPHAMIDE [Suspect]
     Indication: EWING'S SARCOMA
     Route: 065
  5. ETOPOSIDE [Suspect]
     Indication: EWING'S SARCOMA
     Route: 065
  6. VINCRISTINE [Suspect]
     Indication: EWING'S SARCOMA
     Route: 065
  7. RADIATION THERAPY [Concomitant]

REACTIONS (1)
  - MYELODYSPLASTIC SYNDROME [None]
